FAERS Safety Report 16288183 (Version 6)
Quarter: 2021Q3

REPORT INFORMATION
  Report Type: Report from Study
  Country: US (occurrence: US)
  Receive Date: 20190508
  Receipt Date: 20210730
  Transmission Date: 20211014
  Serious: Yes (Hospitalization, Other)
  Sender: FDA-Public Use
  Company Number: US-JAZZ-2019-US-006244

PATIENT
  Age: 18 Year
  Sex: Male
  Weight: 111 kg

DRUGS (6)
  1. XYREM [Suspect]
     Active Substance: SODIUM OXYBATE
     Indication: NARCOLEPSY
     Dosage: 3 G, BID
     Route: 048
     Dates: start: 201903, end: 201904
  2. XYREM [Suspect]
     Active Substance: SODIUM OXYBATE
     Dosage: 3 G, BID
     Route: 048
     Dates: start: 2019
  3. XYREM [Suspect]
     Active Substance: SODIUM OXYBATE
     Indication: CATAPLEXY
     Dosage: 3.75 G, BID
     Route: 048
     Dates: start: 20190424, end: 2019
  4. CONCERTA [Concomitant]
     Active Substance: METHYLPHENIDATE HYDROCHLORIDE
     Indication: PRODUCT USED FOR UNKNOWN INDICATION
     Dosage: 18 MG
  5. CONCERTA [Concomitant]
     Active Substance: METHYLPHENIDATE HYDROCHLORIDE
     Dosage: 54 MG
     Dates: end: 201903
  6. MOTRIN IB [Concomitant]
     Active Substance: IBUPROFEN
     Indication: PRODUCT USED FOR UNKNOWN INDICATION
     Dosage: UNK

REACTIONS (33)
  - Type 2 diabetes mellitus [Unknown]
  - Sleep terror [Not Recovered/Not Resolved]
  - Blood chloride decreased [Not Recovered/Not Resolved]
  - Blood albumin increased [Unknown]
  - Heart rate increased [Recovered/Resolved]
  - Insulin C-peptide increased [Unknown]
  - Eosinophil count increased [Unknown]
  - Somnolence [Recovering/Resolving]
  - Pain [Recovered/Resolved]
  - Alanine aminotransferase increased [Unknown]
  - Blood calcium increased [Recovered/Resolved]
  - Enuresis [Unknown]
  - Acute respiratory distress syndrome [Recovered/Resolved]
  - Stress [Unknown]
  - Serum ferritin increased [Unknown]
  - Blood cholesterol increased [Unknown]
  - Blood magnesium decreased [Recovered/Resolved]
  - Headache [Not Recovered/Not Resolved]
  - Blood sodium decreased [Not Recovered/Not Resolved]
  - Protein total increased [Unknown]
  - Asthenia [Recovering/Resolving]
  - Hyperglycaemic hyperosmolar nonketotic syndrome [Recovering/Resolving]
  - Hallucination [Not Recovered/Not Resolved]
  - Hypertension [Unknown]
  - Cushingoid [Unknown]
  - Haematocrit decreased [Unknown]
  - Hypertriglyceridaemia [Unknown]
  - Aspartate aminotransferase increased [Unknown]
  - Blood ketone body increased [Unknown]
  - Basophil percentage increased [Unknown]
  - Panic attack [Unknown]
  - Monocyte count increased [Unknown]
  - Weight decreased [Recovered/Resolved]

NARRATIVE: CASE EVENT DATE: 2019
